FAERS Safety Report 4590529-8 (Version None)
Quarter: 2005Q1

REPORT INFORMATION
  Report Type: 
  Country: None (occurrence: None)
  Receive Date: 20050224
  Receipt Date: 20050114
  Transmission Date: 20050727
  Serious: Yes (Hospitalization)
  Sender: FDA-Public Use
  Company Number: FR-ROCHE-392500

PATIENT
  Age: 41 Year
  Sex: Female

DRUGS (3)
  1. VALIUM [Suspect]
     Indication: DELIRIUM
     Route: 065
     Dates: start: 20050112, end: 20050112
  2. AUGMENTIN '125' [Concomitant]
     Indication: DRUG USE FOR UNKNOWN INDICATION
     Route: 065
  3. HALDOL [Concomitant]
     Indication: DRUG USE FOR UNKNOWN INDICATION
     Dosage: RECEIVED ONE AMPULE.
     Route: 065

REACTIONS (3)
  - MALAISE [None]
  - MEDICATION ERROR [None]
  - URTICARIA [None]
